FAERS Safety Report 11966332 (Version 1)
Quarter: 2016Q1

REPORT INFORMATION
  Report Type: Spontaneous
  Country: None (occurrence: None)
  Receive Date: 20160126
  Receipt Date: 20160126
  Transmission Date: 20160526
  Serious: Yes (Other)
  Sender: FDA-Public Use
  Company Number: None

PATIENT
  Age: 46 Year
  Sex: Female
  Weight: 58.97 kg

DRUGS (2)
  1. ANTIHISTAMINE CETIRIZINE HYDROCLORIDE 10MG, PHARMASCIENCE, SAFEWAY BRAND [Suspect]
     Active Substance: CETIRIZINE HYDROCHLORIDE
     Indication: EYE PRURITUS
     Route: 048
     Dates: start: 20160124, end: 20160124
  2. B12 SHOTS [Concomitant]
     Active Substance: CYANOCOBALAMIN

REACTIONS (5)
  - Paraesthesia [None]
  - Heart rate increased [None]
  - Paraesthesia oral [None]
  - Hypoaesthesia [None]
  - Hypoaesthesia oral [None]

NARRATIVE: CASE EVENT DATE: 20160124
